FAERS Safety Report 16150955 (Version 1)
Quarter: 2019Q2

REPORT INFORMATION
  Report Type: Spontaneous
  Country: US (occurrence: US)
  Receive Date: 20190402
  Receipt Date: 20190402
  Transmission Date: 20190711
  Serious: Yes (Other)
  Sender: FDA-Public Use
  Company Number: None

PATIENT
  Age: 27 Year
  Sex: Female
  Weight: 110.25 kg

DRUGS (1)
  1. BUPRENORPHINE AND NALOXONE SUBLINGUAL FILM 8MG/2MG [Suspect]
     Active Substance: BUPRENORPHINE\NALOXONE
     Indication: DRUG DEPENDENCE
     Dosage: ?          QUANTITY:2 FILMS;?
     Route: 060
     Dates: start: 20190401, end: 20190401

REACTIONS (4)
  - Product substitution issue [None]
  - Nausea [None]
  - Urticaria [None]
  - Migraine [None]

NARRATIVE: CASE EVENT DATE: 20190401
